FAERS Safety Report 12168203 (Version 1)
Quarter: 2016Q1

REPORT INFORMATION
  Report Type: Spontaneous
  Country: GB (occurrence: GB)
  Receive Date: 20160310
  Receipt Date: 20160310
  Transmission Date: 20160526
  Serious: Yes (Hospitalization)
  Sender: FDA-Public Use
  Company Number: GB-BAUSCH-BL-2016-005442

PATIENT
  Age: 5 Year
  Sex: Male

DRUGS (1)
  1. MINIMS CYCLOPENTOLATE HYDROCHLORIDE 1.0%  W/V EYE DROPS, SOLUTION [Suspect]
     Active Substance: CYCLOPENTOLATE HYDROCHLORIDE
     Indication: PRODUCT USED FOR UNKNOWN INDICATION
     Route: 047
     Dates: start: 20160223, end: 20160223

REACTIONS (2)
  - Ocular hyperaemia [Unknown]
  - Eye swelling [Unknown]

NARRATIVE: CASE EVENT DATE: 20160223
